FAERS Safety Report 5987254-5 (Version None)
Quarter: 2008Q4

REPORT INFORMATION
  Report Type: 
  Country: None (occurrence: None)
  Receive Date: 20081209
  Receipt Date: 20081202
  Transmission Date: 20090506
  Serious: Yes (Hospitalization, Other)
  Sender: FDA-Public Use
  Company Number: AU-AVENTIS-200816132GDDC

PATIENT
  Age: 51 Year
  Sex: Female

DRUGS (4)
  1. ARAVA [Suspect]
     Indication: RHEUMATOID ARTHRITIS
     Route: 048
  2. CLEXANE [Suspect]
     Indication: PROPHYLAXIS
     Route: 058
     Dates: start: 20080201, end: 20080601
  3. ANTIBIOTICS [Concomitant]
     Dosage: DOSE: UNK
  4. ANALGESICS [Concomitant]
     Dosage: DOSE: UNK

REACTIONS (2)
  - FAT NECROSIS [None]
  - THROMBOTIC MICROANGIOPATHY [None]
